FAERS Safety Report 11196943 (Version 2)
Quarter: 2015Q2

REPORT INFORMATION
  Report Type: Spontaneous
  Country: US (occurrence: US)
  Receive Date: 20150617
  Receipt Date: 20150619
  Transmission Date: 20150821
  Serious: Yes (Hospitalization, Other)
  Sender: FDA-Public Use
  Company Number: US-UCBSA-2015018748

PATIENT
  Age: 40 Year
  Sex: Female

DRUGS (3)
  1. RISPERIDONE. [Concomitant]
     Active Substance: RISPERIDONE
     Indication: DEPRESSION
     Dosage: UNK
  2. CIMZIA [Suspect]
     Active Substance: CERTOLIZUMAB PEGOL
     Indication: CROHN^S DISEASE
     Dosage: 400 MG, EV 4 WEEKS
     Dates: start: 20090605, end: 2015
  3. DOMPERIDONE [Concomitant]
     Active Substance: DOMPERIDONE
     Indication: ABDOMINAL PAIN UPPER
     Dosage: 10 MG

REACTIONS (4)
  - Bipolar disorder [Not Recovered/Not Resolved]
  - Suicide attempt [Not Recovered/Not Resolved]
  - Abdominal pain upper [Not Recovered/Not Resolved]
  - Depression [Not Recovered/Not Resolved]

NARRATIVE: CASE EVENT DATE: 201505
